FAERS Safety Report 5624937-0 (Version None)
Quarter: 2008Q1

REPORT INFORMATION
  Report Type: 
  Country: None (occurrence: None)
  Receive Date: 20080213
  Receipt Date: 20080201
  Transmission Date: 20080703
  Serious: Yes (Other)
  Sender: FDA-Public Use
  Company Number: PHHY2008GB01300

PATIENT
  Sex: Male

DRUGS (1)
  1. DESFERAL [Suspect]

REACTIONS (1)
  - RETINAL HAEMORRHAGE [None]
